FAERS Safety Report 23550062 (Version 1)
Quarter: 2024Q1

REPORT INFORMATION
  Report Type: Spontaneous
  Country: US (occurrence: None)
  Receive Date: 20240221
  Receipt Date: 20240221
  Transmission Date: 20240409
  Serious: Yes (Death, Hospitalization)
  Sender: FDA-Public Use
  Company Number: None

PATIENT
  Age: 41 Year
  Sex: Female
  Weight: 68 kg

DRUGS (1)
  1. CYTARABINE [Suspect]
     Active Substance: CYTARABINE

REACTIONS (13)
  - Pancreatitis acute [None]
  - Pleural effusion [None]
  - Lymphadenopathy [None]
  - Aneurysm [None]
  - Central nervous system vasculitis [None]
  - Mental status changes [None]
  - Vasculitis necrotising [None]
  - Respiratory failure [None]
  - Blood lactic acid increased [None]
  - Sepsis [None]
  - Tachycardia [None]
  - Aortic aneurysm [None]
  - Dyspnoea [None]

NARRATIVE: CASE EVENT DATE: 20240218
